FAERS Safety Report 6279502-1 (Version None)
Quarter: 2009Q3

REPORT INFORMATION
  Report Type: 
  Country: None (occurrence: None)
  Receive Date: 20090721
  Receipt Date: 20090706
  Transmission Date: 20100115
  Serious: Yes (Death, Hospitalization)
  Sender: FDA-Public Use
  Company Number: FABR-1000884

PATIENT
  Age: 58 Year
  Sex: Male
  Weight: 54 kg

DRUGS (7)
  1. FABRAZYME [Suspect]
     Indication: FABRY'S DISEASE
     Dosage: 1 MG/KG, Q2W
     Dates: start: 20031021, end: 20090623
  2. BISOPROLOL FUMARATE [Concomitant]
  3. RAMIPRIL [Concomitant]
  4. SERTRALINE [Concomitant]
  5. ASPIRIN [Concomitant]
  6. WARFARIN SODIUM [Concomitant]
  7. METILDIGOXIN (METILDIGOXIN) [Concomitant]

REACTIONS (5)
  - CARDIAC ARREST [None]
  - CELLULITIS STAPHYLOCOCCAL [None]
  - PULMONARY OEDEMA [None]
  - SEPTIC SHOCK [None]
  - STAPHYLOCOCCAL SEPSIS [None]
